FAERS Safety Report 8520487-2 (Version None)
Quarter: 2012Q3

REPORT INFORMATION
  Report Type: 
  Country: None (occurrence: None)
  Receive Date: 20120719
  Receipt Date: 20120711
  Transmission Date: 20120928
  Serious: Yes (Hospitalization, Other)
  Sender: FDA-Public Use
  Company Number: JP-BRISTOL-MYERS SQUIBB COMPANY-15535727

PATIENT
  Age: 74 Year
  Sex: Female
  Weight: 50 kg

DRUGS (15)
  1. ORENCIA [Suspect]
     Indication: RHEUMATOID ARTHRITIS
     Dosage: 2ND INFUSION ON 5JAN11,22FEB11,23MAR11,NO INF:4
     Route: 041
     Dates: start: 20101222
  2. SULFASALAZINE [Concomitant]
  3. PREDNISOLONE [Concomitant]
     Dosage: INTRP ON18JAN11,RESTR ON 19JAN11
  4. ALENDRONATE SODIUM [Concomitant]
  5. METHOTREXATE [Suspect]
  6. PREDNISOLONE [Concomitant]
     Dosage: INTRP ON18JAN11,RESTR ON 19JAN11-ONG 3MG
  7. CELECOXIB [Concomitant]
     Indication: RHEUMATOID ARTHRITIS
  8. ASPARA [Concomitant]
  9. ASPIRIN [Concomitant]
  10. TACROLIMUS [Concomitant]
  11. HUMALOG [Concomitant]
  12. PLAVIX [Concomitant]
  13. ALFAROL [Concomitant]
  14. GLIMICRON [Concomitant]
  15. BREDININ [Concomitant]

REACTIONS (1)
  - CEREBRAL INFARCTION [None]
